FAERS Safety Report 9777622 (Version 2)
Quarter: 2013Q4

REPORT INFORMATION
  Report Type: Spontaneous
  Country: DK (occurrence: DK)
  Receive Date: 20131222
  Receipt Date: 20131222
  Transmission Date: 20140711
  Serious: Yes (Hospitalization, Other)
  Sender: FDA-Public Use
  Company Number: DK-TEVA-260162ISR

PATIENT
  Age: 37 Year
  Sex: Female
  Weight: 63 kg

DRUGS (6)
  1. BLEOMYCIN [Suspect]
     Indication: HODGKIN^S DISEASE
     Route: 042
     Dates: start: 20100827, end: 20101126
  2. BLEOMYCIN [Interacting]
     Indication: NEUTROPENIA
  3. NEULASTA [Interacting]
     Indication: NEUTROPENIA
     Dosage: 6 MG, 1 TIME EVERY 14.-28. DAG.
     Route: 058
     Dates: start: 20101015
  4. ADRIAMYCIN [Concomitant]
     Indication: HODGKIN^S DISEASE
     Route: 042
     Dates: start: 20100827
  5. DACARBAZINE ^MEDAC^ [Concomitant]
     Indication: HODGKIN^S DISEASE
     Route: 042
     Dates: start: 20100827
  6. VINBLASTINE SULFATE [Concomitant]
     Indication: HODGKIN^S DISEASE
     Route: 042
     Dates: start: 20100827

REACTIONS (2)
  - Carbon monoxide diffusing capacity decreased [Not Recovered/Not Resolved]
  - Drug interaction [Unknown]
